FAERS Safety Report 6193236-3 (Version None)
Quarter: 2009Q2

REPORT INFORMATION
  Report Type: 
  Country: None (occurrence: None)
  Receive Date: 20090518
  Receipt Date: 20090508
  Transmission Date: 20091009
  Serious: Yes (Death, Hospitalization, Disabling)
  Sender: FDA-Public Use
  Company Number: A0784435A

PATIENT
  Age: 73 Year
  Sex: Male
  Weight: 65.9 kg

DRUGS (7)
  1. AVANDIA [Suspect]
     Indication: DIABETES MELLITUS
     Dosage: 4MG PER DAY
     Route: 048
     Dates: start: 20040910, end: 20060301
  2. PRANDIN [Concomitant]
  3. STARLIX [Concomitant]
  4. INSULIN [Concomitant]
  5. MICRONASE [Concomitant]
  6. ATENOLOL [Concomitant]
  7. RANITIDINE [Concomitant]

REACTIONS (4)
  - ACUTE MYOCARDIAL INFARCTION [None]
  - CEREBROVASCULAR ACCIDENT [None]
  - DEATH [None]
  - TRANSIENT ISCHAEMIC ATTACK [None]
